FAERS Safety Report 7502127-4 (Version None)
Quarter: 2011Q2

REPORT INFORMATION
  Report Type: 
  Country: None (occurrence: None)
  Receive Date: 20110525
  Receipt Date: 20110513
  Transmission Date: 20111010
  Serious: Yes (Life-Threatening, Hospitalization)
  Sender: FDA-Public Use
  Company Number: FR-PFIZER INC-2010009630

PATIENT
  Age: 22 Year
  Sex: Male
  Weight: 114 kg

DRUGS (6)
  1. SYMBICORT [Concomitant]
     Indication: BLOOD CORTICOTROPHIN DECREASED
     Dosage: 2 DF, 1X/DAY
     Route: 048
     Dates: start: 20080227
  2. LEVOTHYROXINE SODIUM [Concomitant]
     Indication: BLOOD THYROID STIMULATING HORMONE DECREASED
     Dosage: 175 UG, 1X/DAY
     Route: 048
     Dates: start: 20050518
  3. HYDROCORTISONE [Concomitant]
     Indication: BLOOD CORTICOTROPHIN DECREASED
     Dosage: 25 MG, 1X/DAY
     Route: 048
     Dates: start: 20050518
  4. SOMATROPIN RDNA [Suspect]
     Indication: HYPOPITUITARISM
     Dosage: 0.8 MG, 1X/DAY
     Dates: start: 20070411, end: 20100122
  5. LEVOTHYROXINE SODIUM [Concomitant]
     Indication: PRIMARY HYPOTHYROIDISM
  6. MINIRIN ^AVENTIS PHARMA^ [Concomitant]
     Indication: DIABETES INSIPIDUS
     Dosage: 0.5 MG, 1X/DAY
     Route: 048
     Dates: start: 20060110

REACTIONS (2)
  - TYPE 1 DIABETES MELLITUS [None]
  - DIABETIC KETOACIDOSIS [None]
